FAERS Safety Report 5591399-1 (Version None)
Quarter: 2008Q1

REPORT INFORMATION
  Report Type: 
  Country: None (occurrence: None)
  Receive Date: 20080111
  Receipt Date: 20080111
  Transmission Date: 20080703
  Serious: Yes (Death)
  Sender: FDA-Public Use
  Company Number: None

PATIENT
  Age: 58 Year
  Sex: Male
  Weight: 51.5 kg

DRUGS (1)
  1. FONDAPARINUX SODIUM 2.5MG GLAXOSMITHKLINE [Suspect]
     Indication: THROMBOSIS PROPHYLAXIS
     Dosage: 2.5MG EVERY 24 HOURS SQ
     Route: 058
     Dates: start: 20071231, end: 20080108

REACTIONS (4)
  - BRAIN DEATH [None]
  - CARDIO-RESPIRATORY ARREST [None]
  - DEPRESSED LEVEL OF CONSCIOUSNESS [None]
  - HAEMORRHAGE INTRACRANIAL [None]
